FAERS Safety Report 16636036 (Version 1)
Quarter: 2019Q3

REPORT INFORMATION
  Report Type: Spontaneous
  Country: DK (occurrence: DK)
  Receive Date: 20190726
  Receipt Date: 20190726
  Transmission Date: 20191004
  Serious: Yes (Other)
  Sender: FDA-Public Use
  Company Number: DK-ROCHE-2237205

PATIENT
  Age: 44 Year
  Sex: Male

DRUGS (3)
  1. METADON [METHADONE] [Concomitant]
  2. RIVOTRIL [Suspect]
     Active Substance: CLONAZEPAM
     Indication: PRODUCT USED FOR UNKNOWN INDICATION
     Route: 065
  3. COCAINE [Concomitant]
     Active Substance: COCAINE

REACTIONS (4)
  - Drug abuse [Unknown]
  - Drug intolerance [Unknown]
  - Poisoning [Unknown]
  - Depression [Unknown]

NARRATIVE: CASE EVENT DATE: 20181224
